FAERS Safety Report 23080270 (Version 1)
Quarter: 2023Q4

REPORT INFORMATION
  Report Type: Spontaneous
  Country: US (occurrence: None)
  Receive Date: 20231018
  Receipt Date: 20231018
  Transmission Date: 20240110
  Serious: Yes (Hospitalization)
  Sender: FDA-Public Use
  Company Number: None

PATIENT
  Age: 61 Year
  Sex: Male
  Weight: 45 kg

DRUGS (2)
  1. TEGRETOL [Suspect]
     Active Substance: CARBAMAZEPINE
     Dosage: FREQUENCY : 3 TIMES A DAY;?
     Route: 048
     Dates: start: 20220713, end: 20220812
  2. GABAPENTIN [Suspect]
     Active Substance: GABAPENTIN
     Dates: end: 20220812

REACTIONS (6)
  - Speech disorder [None]
  - Asthenia [None]
  - Dysarthria [None]
  - Gait disturbance [None]
  - Fall [None]
  - Delirium [None]

NARRATIVE: CASE EVENT DATE: 20220927
